FAERS Safety Report 7210894-2 (Version None)
Quarter: 2010Q4

REPORT INFORMATION
  Report Type: 
  Country: None (occurrence: None)
  Receive Date: 20101223
  Receipt Date: 20101216
  Transmission Date: 20110411
  Serious: Yes (Hospitalization)
  Sender: FDA-Public Use
  Company Number: VISP-NO-1012S-0556

PATIENT
  Age: 61 Year
  Sex: Male

DRUGS (9)
  1. VISIPAQUE [Suspect]
     Indication: AORTIC DISSECTION
     Dosage: SINGLE, DOSE, I.V.
     Route: 042
     Dates: start: 20101110, end: 20101110
  2. PARACETAMOL [Suspect]
     Dosage: P.O.
     Route: 048
     Dates: start: 20101030, end: 20101115
  3. BROMAZAPEM (LEXOMIL) [Concomitant]
  4. CLONIDINE [Concomitant]
  5. TRAMADOL HYDROCHLORIDE (CONTRAMAL) [Concomitant]
  6. TENORMIN [Concomitant]
  7. NICARDIPINE HCL [Concomitant]
  8. FUROSEMIDE [Concomitant]
  9. PARACETAMOL [Concomitant]

REACTIONS (6)
  - BLISTER [None]
  - CHEILITIS [None]
  - DRUG ERUPTION [None]
  - EPIDERMAL NECROSIS [None]
  - PYREXIA [None]
  - RASH MACULO-PAPULAR [None]
